FAERS Safety Report 5604085-6 (Version None)
Quarter: 2008Q1

REPORT INFORMATION
  Report Type: 
  Country: None (occurrence: None)
  Receive Date: 20080123
  Receipt Date: 20080123
  Transmission Date: 20080703
  Serious: Yes (Other)
  Sender: FDA-Public Use
  Company Number: None

PATIENT
  Age: 76 Year
  Sex: Male
  Weight: 133.3575 kg

DRUGS (1)
  1. FLOMAX [Suspect]
     Indication: ERECTILE DYSFUNCTION
     Dosage: #1  QD  PO
     Route: 048

REACTIONS (1)
  - DRUG INEFFECTIVE [None]
